FAERS Safety Report 11271664 (Version 1)
Quarter: 2015Q3

REPORT INFORMATION
  Report Type: Report from Study
  Country: CO (occurrence: CO)
  Receive Date: 20150715
  Receipt Date: 20150715
  Transmission Date: 20151125
  Serious: Yes (Life-Threatening, Other)
  Sender: FDA-Public Use
  Company Number: CO-AMGEN-COLSL2015061500

PATIENT
  Age: 28 Year
  Sex: Female
  Weight: 56 kg

DRUGS (1)
  1. VECTIBIX [Suspect]
     Active Substance: PANITUMUMAB
     Indication: COLORECTAL CANCER METASTATIC
     Dosage: 250 MCG, EVERY 21 DAYS
     Route: 042
     Dates: start: 20150601, end: 201507

REACTIONS (4)
  - Infusion related reaction [Recovered/Resolved]
  - Intentional product misuse [Not Recovered/Not Resolved]
  - Drug hypersensitivity [Recovered/Resolved]
  - Dyspnoea [Recovered/Resolved]

NARRATIVE: CASE EVENT DATE: 201506
